FAERS Safety Report 10950244 (Version 4)
Quarter: 2015Q4

REPORT INFORMATION
  Report Type: Spontaneous
  Country: US (occurrence: US)
  Receive Date: 20150324
  Receipt Date: 20151013
  Transmission Date: 20160304
  Serious: Yes (Congenital Anomaly)
  Sender: FDA-Public Use
  Company Number: US-ELI_LILLY_AND_COMPANY-US201503005469

PATIENT
  Age: 1 Day

DRUGS (6)
  1. LEXAPRO [Concomitant]
     Active Substance: ESCITALOPRAM OXALATE
     Indication: PRODUCT USED FOR UNKNOWN INDICATION
     Dosage: 10 MG, BID
     Route: 063
  2. DUET DHA [Concomitant]
     Active Substance: .ALPHA.-TOCOPHEROL ACETATE, D-\ASCORBIC ACID\BETA CAROTENE\CALCIUM CARBONATE\CHOLECALCIFEROL\CUPRIC OXIDE\CYANOCOBALAMIN\FOLIC ACID\IODINE\IRON\MAGNESIUM OXIDE\NIACINAMIDE\OMEGA-3 FATTY ACIDS\PYRIDOXINE HYDROCHLORIDE\RIBOFLAVIN\THIAMINE MONONITRATE\ZINC OXIDE
     Indication: VITAMIN SUPPLEMENTATION
     Route: 064
  3. PROZAC [Suspect]
     Active Substance: FLUOXETINE HYDROCHLORIDE
     Indication: PRODUCT USED FOR UNKNOWN INDICATION
     Dosage: 20 MG, UNKNOWN
     Route: 064
  4. GEODON [Concomitant]
     Active Substance: ZIPRASIDONE HYDROCHLORIDE\ZIPRASIDONE MESYLATE
     Indication: PRODUCT USED FOR UNKNOWN INDICATION
     Dosage: 20 MG, BID
     Route: 063
     Dates: end: 20050406
  5. PROZAC [Suspect]
     Active Substance: FLUOXETINE HYDROCHLORIDE
     Dosage: 20 MG, UNKNOWN
     Route: 063
  6. CLINDAMYCIN [Concomitant]
     Active Substance: CLINDAMYCIN\CLINDAMYCIN PHOSPHATE
     Indication: STREPTOCOCCAL URINARY TRACT INFECTION
     Dosage: UNK
     Route: 064

REACTIONS (5)
  - Cardiac septal defect [Unknown]
  - Exposure during pregnancy [Recovered/Resolved]
  - Heart sounds abnormal [Unknown]
  - Exposure during breast feeding [Unknown]
  - Cardiac murmur [Recovered/Resolved]

NARRATIVE: CASE EVENT DATE: 20050405
